FAERS Safety Report 24205365 (Version 2)
Quarter: 2024Q3

REPORT INFORMATION
  Report Type: Other
  Country: CN (occurrence: CN)
  Receive Date: 20240813
  Receipt Date: 20240911
  Transmission Date: 20241016
  Serious: Yes (Disabling, Other)
  Sender: INCYTE
  Company Number: CN-002147023-NVSC2024CN162434

PATIENT

DRUGS (5)
  1. RUXOLITINIB [Suspect]
     Active Substance: RUXOLITINIB
     Indication: Neoplasm
     Dosage: 15 MG, BID
     Route: 048
     Dates: start: 20240628, end: 20240705
  2. RUXOLITINIB [Suspect]
     Active Substance: RUXOLITINIB
     Indication: Pyrexia
  3. RUXOLITINIB [Suspect]
     Active Substance: RUXOLITINIB
     Indication: Peripheral T-cell lymphoma unspecified
  4. ELTROMBOPAG [Suspect]
     Active Substance: ELTROMBOPAG
     Indication: Pyrexia
     Dosage: UNK
     Route: 048
  5. ELTROMBOPAG [Suspect]
     Active Substance: ELTROMBOPAG
     Indication: Peripheral T-cell lymphoma unspecified

REACTIONS (1)
  - Pancytopenia [Unknown]

NARRATIVE: CASE EVENT DATE: 20240705
